FAERS Safety Report 14160387 (Version 1)
Quarter: 2017Q4

REPORT INFORMATION
  Report Type: Spontaneous
  Country: US (occurrence: US)
  Receive Date: 20171106
  Receipt Date: 20171106
  Transmission Date: 20180321
  Serious: No
  Sender: FDA-Public Use
  Company Number: US-JNJFOC-20170915765

PATIENT
  Age: 45 Year
  Sex: Female
  Weight: 68.04 kg

DRUGS (1)
  1. ORTHO TRI CYCLEN LO [Suspect]
     Active Substance: ETHINYL ESTRADIOL\NORGESTIMATE
     Indication: ACNE
     Dosage: STARTED 3 YEARS AGO
     Route: 048
     Dates: start: 2014

REACTIONS (3)
  - Nausea [Not Recovered/Not Resolved]
  - Drug dose omission [Recovered/Resolved]
  - Ocular hyperaemia [Recovered/Resolved]

NARRATIVE: CASE EVENT DATE: 201708
